FAERS Safety Report 6645623-4 (Version None)
Quarter: 2010Q1

REPORT INFORMATION
  Report Type: 
  Country: None (occurrence: None)
  Receive Date: 20100323
  Receipt Date: 20100318
  Transmission Date: 20100710
  Serious: Yes (Death)
  Sender: FDA-Public Use
  Company Number: DE-WYE-G05640310

PATIENT
  Sex: Male
  Weight: 75 kg

DRUGS (35)
  1. TYGACIL [Suspect]
     Indication: ABDOMINAL INFECTION
     Route: 042
     Dates: start: 20091101, end: 20091101
  2. TYGACIL [Suspect]
     Route: 042
     Dates: start: 20091102, end: 20091107
  3. TYGACIL [Suspect]
     Route: 042
     Dates: start: 20091122, end: 20091201
  4. ARTERENOL [Concomitant]
  5. DOBUTAMINE [Concomitant]
  6. DIGIMERCK [Concomitant]
  7. POTASSIUM [Concomitant]
  8. TORSEMIDE [Concomitant]
  9. DORMICUM [Concomitant]
  10. SUFENTA [Concomitant]
  11. TAVOR [Concomitant]
  12. ECALTA [Concomitant]
     Route: 042
     Dates: start: 20091101, end: 20091106
  13. ECALTA [Concomitant]
     Route: 042
     Dates: start: 20091122, end: 20091204
  14. DIFLUCAN [Concomitant]
     Route: 042
     Dates: start: 20091001, end: 20091101
  15. POTASSIUM CANRENOATE [Concomitant]
  16. KONAKION [Concomitant]
  17. PANTOPRAZOLE [Concomitant]
  18. DIPYRONE TAB [Concomitant]
  19. CERNEVIT-12 [Concomitant]
  20. DULCOLAX [Concomitant]
  21. DURAGESIC-100 [Concomitant]
  22. INSULIN [Concomitant]
  23. HYDROCORTISONE [Concomitant]
  24. MERONEM [Concomitant]
     Route: 042
     Dates: start: 20091019, end: 20091030
  25. MERONEM [Concomitant]
     Route: 042
     Dates: start: 20091122, end: 20091201
  26. VANCOMYCIN [Concomitant]
     Dosage: ADJUSTED BY BLOOD LEVEL MEASUREMENTS, 500MG - 2 G PER DAY
     Route: 042
     Dates: start: 20090926, end: 20091101
  27. CIPRO [Suspect]
     Route: 042
     Dates: start: 20091018, end: 20091022
  28. CIPRO [Suspect]
     Route: 042
     Dates: start: 20091030, end: 20091031
  29. METRONIDAZOLE [Concomitant]
     Route: 042
     Dates: start: 20091030, end: 20091101
  30. METRONIDAZOLE [Concomitant]
     Route: 042
     Dates: start: 20091125, end: 20091204
  31. METRONIDAZOLE [Concomitant]
     Route: 048
     Dates: start: 20091202, end: 20091204
  32. FORTUM [Concomitant]
     Route: 042
     Dates: start: 20091101, end: 20091106
  33. MAXIPIME [Concomitant]
     Route: 042
     Dates: start: 20091030, end: 20091101
  34. TOBRAMYCIN [Concomitant]
     Route: 055
     Dates: start: 20091124, end: 20091204
  35. HEPARIN [Concomitant]

REACTIONS (3)
  - MULTI-ORGAN FAILURE [None]
  - SEPSIS [None]
  - TOXIC EPIDERMAL NECROLYSIS [None]
